FAERS Safety Report 8838282 (Version 1)
Quarter: 2012Q4

REPORT INFORMATION
  Report Type: 
  Country: BR (occurrence: BR)
  Receive Date: 20121012
  Receipt Date: 20121012
  Transmission Date: 20130627
  Serious: Yes (Hospitalization)
  Sender: FDA-Public Use
  Company Number: BR-ROCHE-1139247

PATIENT
  Sex: Female
  Weight: 71.5 kg

DRUGS (15)
  1. MABTHERA [Suspect]
     Indication: SYSTEMIC LUPUS ERYTHEMATOSUS
     Dosage: total dose of 2700mg, infusion speed: 50mg/Hour
     Route: 042
     Dates: start: 20120810
  2. OMEPRAZOLE [Concomitant]
     Route: 065
  3. CALCIUM CARBONATE [Concomitant]
     Route: 065
  4. DILTIAZEM [Concomitant]
     Route: 065
  5. PARACETAMOL [Concomitant]
     Route: 065
  6. CYCLOBENZAPRINE [Concomitant]
     Route: 065
  7. HYDROXYCHLOROQUINE SULFATE [Concomitant]
     Route: 065
  8. VITAMIN D3 [Concomitant]
     Route: 065
  9. METHOTREXATE [Concomitant]
     Route: 065
  10. ACID FOLIC [Concomitant]
     Route: 065
  11. CELECOXIB [Concomitant]
     Route: 065
  12. MEDROXYPROGESTERONE [Concomitant]
     Route: 042
  13. PREDNISONE [Concomitant]
     Route: 065
  14. VITAMIN A [Concomitant]
     Dosage: Drop
     Route: 048
  15. VITAMIN D [Concomitant]
     Route: 048

REACTIONS (10)
  - Rash maculo-papular [Recovered/Resolved]
  - Rash maculo-papular [Recovered/Resolved]
  - Rash maculo-papular [Recovered/Resolved]
  - Burning sensation [Recovered/Resolved]
  - Headache [Recovered/Resolved]
  - Pyrexia [Recovered/Resolved]
  - Arthralgia [Recovered/Resolved]
  - Pruritus [Recovered/Resolved]
  - Pain [Recovered/Resolved]
  - Beta haemolytic streptococcal infection [Recovered/Resolved]
